FAERS Safety Report 5221108-7 (Version None)
Quarter: 2007Q1

REPORT INFORMATION
  Report Type: 
  Country: None (occurrence: None)
  Receive Date: 20070126
  Receipt Date: 20060110
  Transmission Date: 20070707
  Serious: No
  Sender: FDA-Public Use
  Company Number: US-BRISTOL-MYERS SQUIBB COMPANY-13242615

PATIENT
  Sex: Female

DRUGS (1)
  1. CEFPROZIL [Suspect]

REACTIONS (2)
  - RASH [None]
  - ROSACEA [None]
